FAERS Safety Report 6699543-X (Version None)
Quarter: 2010Q2

REPORT INFORMATION
  Report Type: 
  Country: None (occurrence: None)
  Receive Date: 20100427
  Receipt Date: 20100427
  Transmission Date: 20101027
  Serious: Yes (Hospitalization)
  Sender: FDA-Public Use
  Company Number: None

PATIENT
  Age: 63 Year
  Sex: Female

DRUGS (1)
  1. CYMBALTA [Suspect]
     Indication: FIBROMYALGIA
     Dosage: 2 CAPS ONCE A DAY PO
     Route: 048
     Dates: start: 20080501, end: 20091101

REACTIONS (24)
  - ABDOMINAL PAIN [None]
  - ANGER [None]
  - APPARENT DEATH [None]
  - ARTHRALGIA [None]
  - ATRIAL FIBRILLATION [None]
  - BLISTER [None]
  - DEPRESSED MOOD [None]
  - DIARRHOEA [None]
  - DIZZINESS [None]
  - FEELING ABNORMAL [None]
  - FEELING OF DESPAIR [None]
  - FOOD CRAVING [None]
  - HEADACHE [None]
  - INDIFFERENCE [None]
  - MOOD SWINGS [None]
  - MUSCLE INJURY [None]
  - MUSCLE SPASMS [None]
  - PAIN IN EXTREMITY [None]
  - PARAESTHESIA [None]
  - PRURITUS [None]
  - RESTLESS LEGS SYNDROME [None]
  - SUICIDE ATTEMPT [None]
  - VERTIGO [None]
  - WEIGHT INCREASED [None]
